FAERS Safety Report 8613492-9 (Version None)
Quarter: 2012Q3

REPORT INFORMATION
  Report Type: 
  Country: None (occurrence: None)
  Receive Date: 20120823
  Receipt Date: 20120807
  Transmission Date: 20120928
  Serious: Yes (Other)
  Sender: FDA-Public Use
  Company Number: JP-MERCK-2012SP034180

PATIENT

DRUGS (10)
  1. PRIMPERAN TAB [Concomitant]
     Indication: PROPHYLAXIS
     Route: 048
     Dates: start: 20120526
  2. LAC-B [Concomitant]
     Route: 048
     Dates: start: 20120526
  3. PEG-INTRON [Suspect]
     Indication: HEPATITIS C
  4. REBETOL [Suspect]
     Indication: PRODUCT USED FOR UNKNOWN INDICATION
     Dosage: 600 MG, QD
     Route: 048
     Dates: start: 20120526, end: 20120604
  5. REBETOL [Suspect]
     Indication: HEPATITIS C
  6. TELAVIC [Suspect]
     Indication: HEPATITIS C
     Route: 048
     Dates: start: 20120526, end: 20120604
  7. PEG-INTRON [Suspect]
     Indication: PRODUCT USED FOR UNKNOWN INDICATION
     Dosage: 1.5MCG/KG/WEEK
     Route: 058
     Dates: start: 20120526, end: 20120604
  8. EVAMYL [Concomitant]
     Dosage: 1MG/DAY,AS NEEDED
     Route: 048
     Dates: start: 20120526
  9. ANTIVIRAL (UNSPECIFIED) [Suspect]
     Indication: PRODUCT USED FOR UNKNOWN INDICATION
     Dosage: 2250 MG, QD
     Route: 048
     Dates: start: 20120526, end: 20120604
  10. ALLOPURINOL [Concomitant]
     Indication: PROPHYLAXIS
     Route: 048
     Dates: start: 20120526

REACTIONS (3)
  - BONE MARROW FAILURE [None]
  - NEUTROPHIL COUNT DECREASED [None]
  - HAEMOGLOBIN DECREASED [None]
